FAERS Safety Report 5533813-3 (Version None)
Quarter: 2007Q4

REPORT INFORMATION
  Report Type: 
  Country: None (occurrence: None)
  Receive Date: 20071204
  Receipt Date: 20071119
  Transmission Date: 20080405
  Serious: Yes (Death)
  Sender: FDA-Public Use
  Company Number: CA-GENENTECH-251848

PATIENT
  Sex: Female

DRUGS (1)
  1. AVASTIN [Suspect]
     Indication: SMALL INTESTINE CARCINOMA METASTATIC
     Dosage: 320 MG, Q2W
     Route: 042
     Dates: start: 20070404, end: 20070816

REACTIONS (1)
  - DEATH [None]
